FAERS Safety Report 8182843-4 (Version None)
Quarter: 2012Q1

REPORT INFORMATION
  Report Type: 
  Country: None (occurrence: None)
  Receive Date: 20120305
  Receipt Date: 20120227
  Transmission Date: 20120608
  Serious: Yes (Other)
  Sender: FDA-Public Use
  Company Number: CA-US-EMD SERONO, INC.-230141K09CAN

PATIENT
  Sex: Female

DRUGS (4)
  1. IBUPROFEN (ADVIL) [Concomitant]
     Indication: PRODUCT USED FOR UNKNOWN INDICATION
  2. REBIF [Suspect]
     Route: 058
     Dates: start: 20110620
  3. REBIF [Suspect]
     Route: 058
     Dates: start: 20100517, end: 20110618
  4. REBIF [Suspect]
     Indication: RELAPSING-REMITTING MULTIPLE SCLEROSIS
     Route: 058
     Dates: start: 20071105, end: 20100515

REACTIONS (13)
  - OPTIC NEURITIS [None]
  - INJECTION SITE PAIN [None]
  - INJECTION SITE INDURATION [None]
  - FATIGUE [None]
  - INJECTION SITE ATROPHY [None]
  - EMOTIONAL DISTRESS [None]
  - INJECTION SITE REACTION [None]
  - PAIN [None]
  - INJECTION SITE ERYTHEMA [None]
  - INJECTION SITE SWELLING [None]
  - INSOMNIA [None]
  - PYREXIA [None]
  - INJECTION SITE DISCOMFORT [None]
